FAERS Safety Report 12724144 (Version 1)
Quarter: 2016Q3

REPORT INFORMATION
  Report Type: Spontaneous
  Country: US (occurrence: US)
  Receive Date: 20160902
  Receipt Date: 20160902
  Transmission Date: 20161109
  Serious: Yes (Hospitalization)
  Sender: FDA-Public Use
  Company Number: None

PATIENT
  Age: 75 Year
  Sex: Male
  Weight: 85.8 kg

DRUGS (1)
  1. CAPECITABINE. [Suspect]
     Active Substance: CAPECITABINE
     Indication: COLON CANCER METASTATIC
     Route: 048
     Dates: start: 20160426, end: 20160508

REACTIONS (8)
  - Mucosal inflammation [None]
  - Septic shock [None]
  - Fall [None]
  - Clostridium colitis [None]
  - Febrile neutropenia [None]
  - Syncope [None]
  - Haemorrhage [None]
  - Decreased activity [None]

NARRATIVE: CASE EVENT DATE: 20160506
